FAERS Safety Report 8826087 (Version 1)
Quarter: 2012Q4

REPORT INFORMATION
  Report Type: Report from Study
  Country: US (occurrence: US)
  Receive Date: 20121005
  Receipt Date: 20121005
  Transmission Date: 20130627
  Serious: Yes (Hospitalization)
  Sender: FDA-Public Use
  Company Number: US-ROCHE-1137519

PATIENT
  Sex: Female
  Weight: 70.37 kg

DRUGS (1)
  1. AVASTIN [Suspect]
     Indication: GLIOBLASTOMA
     Route: 042
     Dates: start: 20120308

REACTIONS (3)
  - Convulsion [Unknown]
  - Cognitive disorder [Unknown]
  - Amnesia [Unknown]
